FAERS Safety Report 15607892 (Version 1)
Quarter: 2018Q4

REPORT INFORMATION
  Report Type: Spontaneous
  Country: US (occurrence: US)
  Receive Date: 20181112
  Receipt Date: 20181112
  Transmission Date: 20190205
  Serious: No
  Sender: FDA-Public Use
  Company Number: US-PFIZER INC-2018453676

PATIENT
  Age: 63 Year
  Sex: Female

DRUGS (8)
  1. LOTREL [Concomitant]
     Active Substance: AMLODIPINE BESYLATE\BENAZEPRIL HYDROCHLORIDE
     Indication: HYPERTENSION
     Dosage: UNK (10-20 MG)
  2. SKELAXIN [Suspect]
     Active Substance: METAXALONE
     Dosage: UNK, 4X/DAY
  3. TYLENOL [Concomitant]
     Active Substance: ACETAMINOPHEN
     Dosage: 1000 MG, UNK
  4. MAXIDENE [Concomitant]
     Active Substance: PIROXICAM
     Indication: HYPERTENSION
     Dosage: 18.75 MG, DAILY, [I TAKE HALF OF A 37.5MG A DAY]
  5. VITAMIN D [Concomitant]
     Active Substance: CHOLECALCIFEROL
     Dosage: 5000 IU, UNK
  6. MORPHINE SULFATE. [Concomitant]
     Active Substance: MORPHINE SULFATE
     Dosage: UNK
     Route: 042
  7. ARTHROTEC [Concomitant]
     Active Substance: DICLOFENAC SODIUM\MISOPROSTOL
     Indication: ARTHRITIS
     Dosage: 75MG ONCE OR TWICE A DAY DEPENDING ON HOW BAD THE ARTHRITIS WAS
  8. SKELAXIN [Suspect]
     Active Substance: METAXALONE
     Indication: FIBROMYALGIA
     Dosage: UNK, 4X/DAY

REACTIONS (7)
  - Product use in unapproved indication [Unknown]
  - Urinary incontinence [Unknown]
  - Dizziness [Unknown]
  - Nausea [Recovering/Resolving]
  - Abdominal pain upper [Not Recovered/Not Resolved]
  - Malaise [Unknown]
  - Weight decreased [Unknown]

NARRATIVE: CASE EVENT DATE: 20181029
